FAERS Safety Report 20715413 (Version 1)
Quarter: 2022Q2

REPORT INFORMATION
  Report Type: Report from Study
  Country: US (occurrence: US)
  Receive Date: 20220415
  Receipt Date: 20220415
  Transmission Date: 20220721
  Serious: Yes (Hospitalization)
  Sender: FDA-Public Use
  Company Number: US-BIOGEN-2022BI01112638

PATIENT
  Sex: Female

DRUGS (1)
  1. VUMERITY [Suspect]
     Active Substance: DIROXIMEL FUMARATE
     Indication: Multiple sclerosis
     Route: 048
     Dates: start: 20210513

REACTIONS (5)
  - Fall [Recovered/Resolved]
  - Thrombosis [Unknown]
  - Loss of control of legs [Unknown]
  - Central nervous system lesion [Unknown]
  - Dysstasia [Not Recovered/Not Resolved]
